FAERS Safety Report 10196939 (Version 2)
Quarter: 2014Q3

REPORT INFORMATION
  Report Type: Spontaneous
  Country: US (occurrence: US)
  Receive Date: 20140527
  Receipt Date: 20140707
  Transmission Date: 20150326
  Serious: No
  Sender: FDA-Public Use
  Company Number: US-TEVA-483949USA

PATIENT
  Sex: Female
  Weight: 81.27 kg

DRUGS (3)
  1. CLINDAMYCIN [Concomitant]
     Active Substance: CLINDAMYCIN\CLINDAMYCIN PHOSPHATE
     Indication: ACNE
  2. TRIAMCINOLONE CREAM [Concomitant]
     Indication: ACNE
  3. PARAGARD T380A [Suspect]
     Active Substance: COPPER
     Indication: CONTRACEPTION
     Route: 015
     Dates: start: 20140522, end: 20140522

REACTIONS (2)
  - Abdominal pain [Recovered/Resolved]
  - Uterine cervix stenosis [Not Recovered/Not Resolved]
